FAERS Safety Report 8830833 (Version 1)
Quarter: 2012Q4

REPORT INFORMATION
  Report Type: 
  Country: US (occurrence: US)
  Receive Date: 20121008
  Receipt Date: 20121008
  Transmission Date: 20130627
  Serious: Yes (Other)
  Sender: FDA-Public Use
  Company Number: US-ASTRAZENECA-2012SE19425

PATIENT
  Age: 59 Year
  Sex: Female

DRUGS (13)
  1. NEXIUM [Suspect]
     Route: 048
  2. ALBUTEROL [Concomitant]
  3. DIOVAN HCT [Concomitant]
  4. EAR DROPS [Concomitant]
  5. FLEXERIL [Concomitant]
  6. FLOVENT HFA [Concomitant]
  7. FLUTICASONE [Concomitant]
  8. LORTAB [Concomitant]
  9. MIRAPEX [Concomitant]
  10. NEURONTIN [Concomitant]
  11. PERCOCET [Concomitant]
  12. PREDNISONE [Concomitant]
  13. ZANTAC [Concomitant]

REACTIONS (4)
  - Gastric haemorrhage [Unknown]
  - Ulcer haemorrhage [Unknown]
  - Nerve compression [Unknown]
  - Drug dose omission [Unknown]
